FAERS Safety Report 10180313 (Version 1)
Quarter: 2014Q2

REPORT INFORMATION
  Report Type: Spontaneous
  Country: US (occurrence: US)
  Receive Date: 20140519
  Receipt Date: 20140519
  Transmission Date: 20141212
  Serious: No
  Sender: FDA-Public Use
  Company Number: US-AMGEN INC.-USASP2013082334

PATIENT
  Age: 87 Year
  Sex: Female

DRUGS (9)
  1. PROLIA [Suspect]
     Indication: OSTEOPOROSIS
     Dosage: UNK
     Route: 065
     Dates: start: 2012
  2. VITAMIN D                          /00107901/ [Concomitant]
     Dosage: 50000 UNIT, QMO
  3. CALCIUM [Concomitant]
     Dosage: 2 DF, QD
  4. CENTRUM                            /02217401/ [Concomitant]
  5. DIOVAN [Concomitant]
  6. LEVOTHYROXINE                      /00068002/ [Concomitant]
     Indication: HYPOTHYROIDISM
  7. AMLODIPINE [Concomitant]
     Indication: HYPERTENSION
  8. ATENOLOL [Concomitant]
     Indication: HYPERTENSION
  9. LATANOPROST [Concomitant]

REACTIONS (10)
  - Chapped lips [Unknown]
  - Dry skin [Unknown]
  - Pain [Unknown]
  - Gingival erythema [Unknown]
  - Gingival swelling [Unknown]
  - Cheilitis [Unknown]
  - Lip blister [Unknown]
  - Vitiligo [Unknown]
  - Bone pain [Unknown]
  - Abdominal discomfort [Unknown]
